FAERS Safety Report 18072634 (Version 1)
Quarter: 2020Q3

REPORT INFORMATION
  Report Type: Report from Study
  Country: None (occurrence: US)
  Receive Date: 20200727
  Receipt Date: 20200727
  Transmission Date: 20201103
  Serious: No
  Sender: FDA-Public Use
  Company Number: US-BIOVITRUM-2020US2027

PATIENT
  Sex: Female

DRUGS (1)
  1. KINERET [Suspect]
     Active Substance: ANAKINRA
     Indication: STILL^S DISEASE
     Route: 058
     Dates: start: 20190412

REACTIONS (5)
  - Injection site pain [Unknown]
  - Rash macular [Unknown]
  - Pruritus [Unknown]
  - Liquid product physical issue [Unknown]
  - Off label use [Not Recovered/Not Resolved]
